FAERS Safety Report 13591480 (Version 1)
Quarter: 2017Q2

REPORT INFORMATION
  Report Type: Report from Study
  Country: CA (occurrence: CA)
  Receive Date: 20170530
  Receipt Date: 20170530
  Transmission Date: 20170830
  Serious: Yes (Hospitalization, Other)
  Sender: FDA-Public Use
  Company Number: CA-GLAXOSMITHKLINE-CA2017GSK080829

PATIENT
  Sex: Female

DRUGS (6)
  1. FLUTICASONE PROPIONATE+SALMETEROL XINAFOATE [Suspect]
     Active Substance: FLUTICASONE PROPIONATE\SALMETEROL XINAFOATE
     Indication: PRODUCT USED FOR UNKNOWN INDICATION
     Dosage: UNK
  2. SPIRIVA [Concomitant]
     Active Substance: TIOTROPIUM BROMIDE MONOHYDRATE
     Indication: PRODUCT USED FOR UNKNOWN INDICATION
     Dosage: 1 PUFF(S), 1D
  3. ESTRADOT [Concomitant]
     Active Substance: ESTRADIOL
     Indication: PRODUCT USED FOR UNKNOWN INDICATION
     Dosage: UNK
  4. SINGULAIR [Concomitant]
     Active Substance: MONTELUKAST SODIUM
     Indication: PRODUCT USED FOR UNKNOWN INDICATION
     Dosage: 10 MG, 1D
  5. VENTOLIN [Suspect]
     Active Substance: ALBUTEROL SULFATE
     Indication: PRODUCT USED FOR UNKNOWN INDICATION
     Dosage: UNK
  6. ANTIHISTAMINE [Concomitant]
     Active Substance: ANTIHISTAMINES NOS
     Indication: PRODUCT USED FOR UNKNOWN INDICATION
     Dosage: UNK

REACTIONS (38)
  - Productive cough [Unknown]
  - Seasonal allergy [Unknown]
  - Nasal disorder [Unknown]
  - Sinus headache [Unknown]
  - Fatigue [Unknown]
  - Rhinitis [Unknown]
  - Atopy [Unknown]
  - Nasal congestion [Unknown]
  - Mechanical urticaria [Unknown]
  - Lung hyperinflation [Unknown]
  - Cough [Unknown]
  - Bronchial secretion retention [Unknown]
  - Spirometry abnormal [Unknown]
  - Asthmatic crisis [Unknown]
  - Conjunctivitis [Unknown]
  - Sinusitis [Unknown]
  - Asthma [Unknown]
  - Nasal polyps [Unknown]
  - Face oedema [Unknown]
  - Ill-defined disorder [Unknown]
  - Drug ineffective [Unknown]
  - Insomnia [Unknown]
  - Nausea [Unknown]
  - Bronchiectasis [Unknown]
  - Anosmia [Unknown]
  - Lung disorder [Unknown]
  - Sputum discoloured [Unknown]
  - Wheezing [Unknown]
  - Breath sounds abnormal [Unknown]
  - Nasal discharge discolouration [Unknown]
  - Hyperaemia [Unknown]
  - Bronchial obstruction [Unknown]
  - Sneezing [Unknown]
  - Dyspnoea [Unknown]
  - Upper respiratory tract infection [Unknown]
  - Induration [Unknown]
  - Post procedural complication [Unknown]
  - Eosinophil count increased [Unknown]
